FAERS Safety Report 18980607 (Version 1)
Quarter: 2021Q1

REPORT INFORMATION
  Report Type: Spontaneous
  Country: US (occurrence: US)
  Receive Date: 20210307
  Receipt Date: 20210307
  Transmission Date: 20210420
  Serious: Yes (Other)
  Sender: FDA-Public Use
  Company Number: None

PATIENT
  Age: 56 Year
  Sex: Female
  Weight: 90 kg

DRUGS (9)
  1. TROKENDI [Concomitant]
     Active Substance: TOPIRAMATE
  2. AIMOVIG [Suspect]
     Active Substance: ERENUMAB-AOOE
     Indication: MIGRAINE
     Dosage: ?          QUANTITY:1 INJECTION(S);OTHER FREQUENCY:ONCE A MONTH;?
     Route: 030
     Dates: start: 20210305, end: 20210305
  3. CPAP (CONTINUOUS POSITIVE AIRWAY PRESSURE) [Concomitant]
     Active Substance: DEVICE
  4. TIZANIDINE. [Concomitant]
     Active Substance: TIZANIDINE
  5. METOPROLOL. [Concomitant]
     Active Substance: METOPROLOL
  6. VITAMIN B12 [Concomitant]
     Active Substance: CYANOCOBALAMIN
  7. VITAMIN D3 [Concomitant]
     Active Substance: CHOLECALCIFEROL
  8. DULOXETINE. [Concomitant]
     Active Substance: DULOXETINE
  9. XARELTO [Concomitant]
     Active Substance: RIVAROXABAN

REACTIONS (5)
  - Pruritus [None]
  - Dizziness [None]
  - Swollen tongue [None]
  - Paraesthesia oral [None]
  - Hot flush [None]

NARRATIVE: CASE EVENT DATE: 20210305
